FAERS Safety Report 9349789 (Version 2)
Quarter: 2013Q3

REPORT INFORMATION
  Report Type: Spontaneous
  Country: GB (occurrence: None)
  Receive Date: 20130611
  Receipt Date: 20130924
  Transmission Date: 20140515
  Serious: Yes (Death)
  Sender: FDA-Public Use
  Company Number: AMAG201300088

PATIENT
  Age: 73 Year
  Sex: Male

DRUGS (15)
  1. RIENSO [Suspect]
     Route: 042
     Dates: start: 20130522, end: 20130522
  2. LANSOPRAZOL (LANSOPRAZOL) [Concomitant]
  3. JANUVIA (SITAGLIPTIN PHOSPHATE) [Concomitant]
  4. ALFACALCIDOL (ALFACALIDOL) [Concomitant]
  5. KALCIPOS-D (CALCIUM CARBONATE, COLECALCIFEROL) [Concomitant]
  6. BETOLVEX (CYANOCOBALAMIN) [Concomitant]
  7. LASIX (FUROSEMIDE) [Concomitant]
  8. FELODIPIN (FELODIPIN) [Concomitant]
  9. LINATIL (ENALAPRIL MALEATE) [Concomitant]
  10. ATACAND (CANDESARTAN CILEXETIL) [Concomitant]
  11. ATORVASTATIN (ATORVASTATIN) [Concomitant]
  12. MYFORLIC (MYCOPHENOIATE SODIUM) [Concomitant]
  13. DISPERIN (ACETYLSALICYCLIC ACID) [Concomitant]
  14. PARAFIN (AQUALAN L) [Concomitant]
  15. PARAFFIN (AQUALAN PLUS) [Concomitant]

REACTIONS (3)
  - Hypertension [None]
  - Cardiac hypertrophy [None]
  - Arrhythmia [None]
